FAERS Safety Report 12499043 (Version 1)
Quarter: 2016Q2

REPORT INFORMATION
  Report Type: Spontaneous
  Country: US (occurrence: None)
  Receive Date: 20160624
  Receipt Date: 20160624
  Transmission Date: 20160815
  Serious: Yes (Disabling, Other)
  Sender: FDA-Public Use
  Company Number: None

PATIENT
  Age: 39 Year
  Sex: Female
  Weight: 55.34 kg

DRUGS (2)
  1. LIOTHYRONINE [Concomitant]
     Active Substance: LIOTHYRONINE
  2. LEVOTHYROXINE. [Suspect]
     Active Substance: LEVOTHYROXINE
     Indication: HYPOTHYROIDISM
     Dosage: IN THE MORNING, TAKEN BY MOUTH
     Route: 048

REACTIONS (9)
  - Madarosis [None]
  - Carpal tunnel syndrome [None]
  - Hypotension [None]
  - Dry eye [None]
  - Activities of daily living impaired [None]
  - Muscular weakness [None]
  - Weight increased [None]
  - Visual impairment [None]
  - Skin disorder [None]

NARRATIVE: CASE EVENT DATE: 20120101
